FAERS Safety Report 6154850-4 (Version None)
Quarter: 2009Q2

REPORT INFORMATION
  Report Type: 
  Country: None (occurrence: None)
  Receive Date: 20090414
  Receipt Date: 20090403
  Transmission Date: 20091009
  Serious: Yes (Hospitalization, Other)
  Sender: FDA-Public Use
  Company Number: JP-PFIZER INC-2009189852

PATIENT

DRUGS (1)
  1. ALDACTONE [Suspect]
     Dosage: UNK
     Route: 048

REACTIONS (2)
  - GYNAECOMASTIA [None]
  - UNEVALUABLE EVENT [None]
